FAERS Safety Report 8890881 (Version 1)
Quarter: 2012Q4

REPORT INFORMATION
  Report Type: Report from Study
  Country: US (occurrence: US)
  Receive Date: 20121107
  Receipt Date: 20121107
  Transmission Date: 20130627
  Serious: Yes (Other)
  Sender: FDA-Public Use
  Company Number: US-ROCHE-1148997

PATIENT
  Age: 59 Year
  Sex: Male
  Weight: 106.9 kg

DRUGS (12)
  1. TELAPREVIR [Suspect]
     Indication: HEPATITIS C
     Route: 048
     Dates: start: 20120911, end: 20121015
  2. PEG-INTERFERON ALFA 2A [Suspect]
     Indication: PRODUCT USED FOR UNKNOWN INDICATION
     Route: 058
     Dates: start: 20120911, end: 20121015
  3. RIBAVIRIN [Suspect]
     Indication: PRODUCT USED FOR UNKNOWN INDICATION
     Route: 048
     Dates: start: 20120911, end: 20120924
  4. RIBAVIRIN [Suspect]
     Route: 048
     Dates: start: 20120925, end: 20120928
  5. RIBAVIRIN [Suspect]
     Route: 048
     Dates: start: 20120929, end: 20121015
  6. LOPROX [Concomitant]
     Route: 065
     Dates: start: 20120917, end: 20120920
  7. OXYCODONE [Concomitant]
     Route: 065
     Dates: start: 20120824
  8. TACROLIMUS [Concomitant]
     Route: 065
     Dates: start: 20120903
  9. HYDROXYZINE [Concomitant]
     Route: 065
     Dates: start: 20120914, end: 20120920
  10. HYDROCORTISONE/LIDOCAINE [Concomitant]
     Route: 065
     Dates: start: 20120915, end: 20120920
  11. TRIAMCINOLONE [Concomitant]
     Route: 065
     Dates: start: 20120920, end: 20120920
  12. DOXEPIN [Concomitant]

REACTIONS (2)
  - Blood creatine phosphokinase increased [Unknown]
  - Muscular weakness [Unknown]
